FAERS Safety Report 20867245 (Version 1)
Quarter: 2022Q2

REPORT INFORMATION
  Report Type: Spontaneous
  Country: US (occurrence: US)
  Receive Date: 20220524
  Receipt Date: 20220524
  Transmission Date: 20220720
  Serious: No
  Sender: FDA-Public Use
  Company Number: US-PFIZER INC-202200638246

PATIENT
  Age: 80 Year
  Sex: Female
  Weight: 63.5 kg

DRUGS (1)
  1. LIDOCAINE HYDROCHLORIDE [Suspect]
     Active Substance: LIDOCAINE HYDROCHLORIDE
     Indication: Musculoskeletal stiffness
     Dosage: UNK

REACTIONS (1)
  - Drug ineffective [Unknown]
